FAERS Safety Report 4595751-2 (Version None)
Quarter: 2005Q1

REPORT INFORMATION
  Report Type: 
  Country: None (occurrence: None)
  Receive Date: 20050302
  Receipt Date: 20031031
  Transmission Date: 20050727
  Serious: Yes (Congenital Anomaly)
  Sender: FDA-Public Use
  Company Number: 12428462

PATIENT
  Sex: Female

DRUGS (3)
  1. EFAVIRENZ [Suspect]
     Dosage: EXPOSURE BEGAN AT CONCEPTION TO WEEK 18 + 4 DAYS OF GESTATION.
     Route: 064
     Dates: start: 19990101
  2. STAVUDINE [Suspect]
     Dosage: EXPOSURE DURING GESTATION.
     Route: 064
     Dates: start: 19990101
  3. DIDANOSINE [Suspect]
     Dosage: EXPOSURE DURING GESTATION.
     Route: 064
     Dates: start: 19990101

REACTIONS (6)
  - ABORTION INDUCED [None]
  - BONE DEVELOPMENT ABNORMAL [None]
  - CONGENITAL MUSCULOSKELETAL ANOMALY [None]
  - CONGENITAL PULMONARY VALVE DISORDER [None]
  - DRUG EXPOSURE DURING PREGNANCY [None]
  - PULMONARY MALFORMATION [None]
